FAERS Safety Report 12506012 (Version 1)
Quarter: 2016Q2

REPORT INFORMATION
  Report Type: Spontaneous
  Country: JP (occurrence: JP)
  Receive Date: 20160628
  Receipt Date: 20160628
  Transmission Date: 20160815
  Serious: Yes (Death, Other)
  Sender: FDA-Public Use
  Company Number: PHHY2016JP084557

PATIENT
  Age: 57 Year
  Sex: Male

DRUGS (8)
  1. ELCATONIN [Suspect]
     Active Substance: ELCATONIN
     Indication: SQUAMOUS CELL CARCINOMA
     Route: 065
  2. ELCATONIN [Suspect]
     Active Substance: ELCATONIN
     Indication: HYPERCALCAEMIA OF MALIGNANCY
  3. PREDNISOLONE. [Suspect]
     Active Substance: PREDNISOLONE
     Indication: SQUAMOUS CELL CARCINOMA
     Route: 065
  4. FUROSEMIDE. [Suspect]
     Active Substance: FUROSEMIDE
     Indication: SQUAMOUS CELL CARCINOMA
     Route: 065
  5. PAMIDRONATE [Suspect]
     Active Substance: PAMIDRONATE DISODIUM
     Indication: SQUAMOUS CELL CARCINOMA
     Route: 065
  6. PAMIDRONATE [Suspect]
     Active Substance: PAMIDRONATE DISODIUM
     Indication: HYPERCALCAEMIA OF MALIGNANCY
  7. FUROSEMIDE. [Suspect]
     Active Substance: FUROSEMIDE
     Indication: HYPERCALCAEMIA
  8. PREDNISOLONE. [Suspect]
     Active Substance: PREDNISOLONE
     Indication: HYPERCALCAEMIA OF MALIGNANCY

REACTIONS (8)
  - Malignant pleural effusion [Fatal]
  - Respiratory failure [Unknown]
  - Metastatic squamous cell carcinoma [Unknown]
  - Metastases to pelvis [Unknown]
  - Metastases to bone [Unknown]
  - Malignant neoplasm progression [Unknown]
  - Metastases to lung [Unknown]
  - Metastases to adrenals [Unknown]
